FAERS Safety Report 18514615 (Version 1)
Quarter: 2020Q4

REPORT INFORMATION
  Report Type: Spontaneous
  Country: IT (occurrence: IT)
  Receive Date: 20201117
  Receipt Date: 20201117
  Transmission Date: 20210114
  Serious: Yes (Hospitalization)
  Sender: FDA-Public Use
  Company Number: IT-BEH-2020124810

PATIENT
  Age: 7 Year
  Weight: 23 kg

DRUGS (3)
  1. BARICITINIB. [Concomitant]
     Active Substance: BARICITINIB
     Dosage: 4 MILLIGRAM
     Route: 048
  2. REUMAFLEX [METHOTREXATE SODIUM] [Concomitant]
     Active Substance: METHOTREXATE SODIUM
     Route: 065
  3. PRIVIGEN [Suspect]
     Active Substance: HUMAN IMMUNOGLOBULIN G
     Indication: DERMATOMYOSITIS
     Dosage: 45 GRAM, TOT
     Route: 065
     Dates: start: 20201010, end: 20201011

REACTIONS (5)
  - Meningism [Unknown]
  - Off label use [Unknown]
  - Headache [Unknown]
  - No adverse event [Unknown]
  - Vomiting [Unknown]

NARRATIVE: CASE EVENT DATE: 20201012
